FAERS Safety Report 10563558 (Version 3)
Quarter: 2015Q1

REPORT INFORMATION
  Report Type: Spontaneous
  Country: KR (occurrence: KR)
  Receive Date: 20141104
  Receipt Date: 20150224
  Transmission Date: 20150720
  Serious: Yes (Death)
  Sender: FDA-Public Use
  Company Number: KR-PFIZER INC-2014290857

PATIENT
  Age: 47 Year
  Sex: Female

DRUGS (2)
  1. ERAXIS [Suspect]
     Active Substance: ANIDULAFUNGIN
     Indication: CANDIDA INFECTION
     Dosage: 200 MG, 1X/DAY
     Route: 040
     Dates: start: 20141021
  2. ERAXIS [Suspect]
     Active Substance: ANIDULAFUNGIN
     Dosage: 100 MG, 1X/DAY
     Route: 040

REACTIONS (7)
  - Heart rate decreased [Unknown]
  - Bacterial sepsis [Fatal]
  - Condition aggravated [Fatal]
  - Condition aggravated [Unknown]
  - Wrong technique in drug usage process [Unknown]
  - Blood pressure decreased [Unknown]
  - Incorrect route of drug administration [Unknown]

NARRATIVE: CASE EVENT DATE: 201410
